FAERS Safety Report 4808908-X (Version None)
Quarter: 2005Q4

REPORT INFORMATION
  Report Type: 
  Country: None (occurrence: None)
  Receive Date: 20051021
  Receipt Date: 20030115
  Transmission Date: 20060501
  Serious: No
  Sender: FDA-Public Use
  Company Number: DE_030110534

PATIENT
  Age: 34 Year
  Sex: Male

DRUGS (1)
  1. ZYPREXA [Suspect]
     Indication: PSYCHOTIC DISORDER
     Dosage: 20 MG/DAY
     Dates: start: 20000101

REACTIONS (4)
  - ERYTHEMA [None]
  - HAEMATOCRIT INCREASED [None]
  - PSYCHOTIC DISORDER [None]
  - RED BLOOD CELL COUNT INCREASED [None]
